FAERS Safety Report 5682235-3 (Version None)
Quarter: 2008Q1

REPORT INFORMATION
  Report Type: 
  Country: None (occurrence: None)
  Receive Date: 20080325
  Receipt Date: 20080304
  Transmission Date: 20080703
  Serious: Yes (Other)
  Sender: FDA-Public Use
  Company Number: 2008S1003788

PATIENT
  Age: 19 Year
  Sex: Female

DRUGS (1)
  1. ISOTRETINOIN (ISOTRETINOIN) DOSE, FORM, ROUTE AND FREQUENCY 40 MG; CAP [Suspect]
     Indication: ACNE
     Dosage: 40 MG; DAILY
     Route: 048
     Dates: start: 20071012, end: 20071101

REACTIONS (6)
  - DRUG EXPOSURE DURING PREGNANCY [None]
  - DRY SKIN [None]
  - INFLUENZA [None]
  - MALAISE [None]
  - PREGNANCY [None]
  - THYROID CANCER [None]
